FAERS Safety Report 12741866 (Version 1)
Quarter: 2016Q3

REPORT INFORMATION
  Report Type: Spontaneous
  Country: US (occurrence: US)
  Receive Date: 20160914
  Receipt Date: 20160914
  Transmission Date: 20161109
  Serious: No
  Sender: FDA-Public Use
  Company Number: US-009507513-1608USA013859

PATIENT
  Age: 61 Year
  Sex: Female

DRUGS (1)
  1. NASONEX [Suspect]
     Active Substance: MOMETASONE FUROATE

REACTIONS (2)
  - Nasal oedema [Not Recovered/Not Resolved]
  - Nasal cavity mass [Not Recovered/Not Resolved]
